FAERS Safety Report 7726756-8 (Version None)
Quarter: 2011Q3

REPORT INFORMATION
  Report Type: 
  Country: None (occurrence: None)
  Receive Date: 20110902
  Receipt Date: 20081031
  Transmission Date: 20111222
  Serious: Yes (Hospitalization)
  Sender: FDA-Public Use
  Company Number: US-GLAXOSMITHKLINE-A0755217A

PATIENT
  Age: 59 Year
  Sex: Female
  Weight: 84.5 kg

DRUGS (3)
  1. AVANDIA [Suspect]
     Indication: TYPE 2 DIABETES MELLITUS
     Route: 048
     Dates: start: 20040101, end: 20061201
  2. GLYNASE [Concomitant]
  3. NOVOLIN 70/30 [Concomitant]

REACTIONS (3)
  - DIZZINESS [None]
  - CORONARY ARTERY DISEASE [None]
  - CARDIAC DISORDER [None]
